FAERS Safety Report 4430315-2 (Version None)
Quarter: 2004Q3

REPORT INFORMATION
  Report Type: 
  Country: None (occurrence: None)
  Receive Date: 20040820
  Receipt Date: 20040701
  Transmission Date: 20050211
  Serious: Yes (Other)
  Sender: FDA-Public Use
  Company Number: DE-AMGEN-UK081326

PATIENT
  Sex: Female
  Weight: 79 kg

DRUGS (7)
  1. ARANESP [Suspect]
     Indication: RENAL TRANSPLANT
     Route: 058
     Dates: start: 20011116
  2. CELLCEPT [Concomitant]
     Route: 048
     Dates: start: 19970101
  3. URBASON [Concomitant]
     Route: 048
     Dates: start: 19970101
  4. DILATREND [Concomitant]
     Route: 048
  5. COZAAR [Concomitant]
     Route: 048
  6. NORVASC [Concomitant]
     Route: 048
  7. DOXAZOSIN [Concomitant]
     Route: 048

REACTIONS (5)
  - ANAEMIA [None]
  - BIOPSY BONE MARROW ABNORMAL [None]
  - COMPLICATIONS OF TRANSPLANTED KIDNEY [None]
  - ERYTHROPOIESIS ABNORMAL [None]
  - HAEMOSIDEROSIS [None]
